FAERS Safety Report 4287801-8 (Version None)
Quarter: 2004Q1

REPORT INFORMATION
  Report Type: 
  Country: None (occurrence: None)
  Receive Date: 20040209
  Receipt Date: 20030930
  Transmission Date: 20041129
  Serious: No
  Sender: FDA-Public Use
  Company Number: US-GLAXOSMITHKLINE-A0428064A

PATIENT
  Sex: Male

DRUGS (6)
  1. PAXIL [Suspect]
     Indication: DEPRESSION
     Dosage: 37.5MG PER DAY
     Route: 048
     Dates: start: 20030925
  2. LAMICTAL [Concomitant]
  3. LORAZEPAM [Concomitant]
  4. LIPITOR [Concomitant]
  5. INSULIN [Concomitant]
  6. ACTOS [Concomitant]

REACTIONS (1)
  - SOMNOLENCE [None]
